FAERS Safety Report 8081934-6 (Version None)
Quarter: 2012Q1

REPORT INFORMATION
  Report Type: 
  Country: None (occurrence: None)
  Receive Date: 20120130
  Receipt Date: 20110510
  Transmission Date: 20120608
  Serious: No
  Sender: FDA-Public Use
  Company Number: US-ABBOTT-11P-163-0725230-00

PATIENT
  Age: 78 Year
  Sex: Male

DRUGS (3)
  1. TAXOTERE [Concomitant]
     Indication: PROSTATE CANCER
  2. LEUPROLIDE ACETATE [Suspect]
  3. LEUPROLIDE ACETATE [Suspect]
     Indication: PROSTATE CANCER

REACTIONS (2)
  - TREATMENT NONCOMPLIANCE [None]
  - DEEP VEIN THROMBOSIS [None]
